FAERS Safety Report 24594517 (Version 1)
Quarter: 2024Q4

REPORT INFORMATION
  Report Type: Report from Study
  Country: AR (occurrence: AR)
  Receive Date: 20241108
  Receipt Date: 20241108
  Transmission Date: 20250114
  Serious: Yes (Hospitalization, Other)
  Sender: AMGEN
  Company Number: AR-AMGEN-ARGSL2024213664

PATIENT
  Age: 51 Year
  Sex: Male

DRUGS (1)
  1. VECTIBIX [Suspect]
     Active Substance: PANITUMUMAB
     Indication: Colorectal cancer
     Dosage: UNK, 15 DAYS
     Route: 065
     Dates: start: 20231115

REACTIONS (2)
  - Abdominal pain upper [Unknown]
  - Surgery [Unknown]

NARRATIVE: CASE EVENT DATE: 20230101
